FAERS Safety Report 6765323-X (Version None)
Quarter: 2010Q2

REPORT INFORMATION
  Report Type: 
  Country: None (occurrence: None)
  Receive Date: 20100611
  Receipt Date: 20100531
  Transmission Date: 20101027
  Serious: Yes (Hospitalization, Other)
  Sender: FDA-Public Use
  Company Number: PHHY2010DE19248

PATIENT
  Sex: Female
  Weight: 92 kg

DRUGS (10)
  1. ALISKIREN ALI+ [Suspect]
     Indication: HYPERTENSION
     Dosage: 300 MG, PER DAY
     Route: 048
     Dates: start: 20090219
  2. FALITHROM [Suspect]
     Indication: ATRIAL FIBRILLATION
     Dosage: 5 MG, PER DAY
     Route: 048
     Dates: start: 20090630
  3. CARMEN [Suspect]
     Indication: HYPERTENSION
     Dosage: 20 MG, PER DAY
     Route: 048
     Dates: start: 20090630
  4. LISIHEXAL [Suspect]
     Indication: HYPERTENSION
     Dosage: 20 MG, PER DAY
     Route: 048
     Dates: start: 20080306
  5. METOHEXAL [Suspect]
     Indication: HYPERTENSION
     Dosage: 95 MG, PER DAY
     Route: 048
     Dates: start: 20081013
  6. DIGITOXIN TAB [Suspect]
     Indication: CARDIAC FAILURE
     Dosage: 0.07 MG, PER DAY
     Route: 048
     Dates: start: 20091227
  7. ASPIRIN [Suspect]
     Indication: ATRIAL FIBRILLATION
     Dosage: 100 MG, PER DAY
     Route: 048
     Dates: start: 20091227
  8. CARDULAR [Suspect]
     Indication: HYPERTENSION
     Dosage: 4 MG, PER DAY
     Route: 048
     Dates: start: 20100203
  9. DIURETICS [Concomitant]
     Dosage: UNK
     Dates: start: 20090302
  10. CALCIUM CHANNEL BLOCKERS [Concomitant]

REACTIONS (5)
  - ALBUMIN URINE PRESENT [None]
  - ATRIAL FIBRILLATION [None]
  - CARDIAC FAILURE [None]
  - EPISTAXIS [None]
  - HYPERTENSIVE CRISIS [None]
